FAERS Safety Report 15611683 (Version 2)
Quarter: 2018Q4

REPORT INFORMATION
  Report Type: Report from Study
  Country: US (occurrence: US)
  Receive Date: 20181113
  Receipt Date: 20181121
  Transmission Date: 20190205
  Serious: Yes (Hospitalization)
  Sender: FDA-Public Use
  Company Number: US-ROCHE-2204991

PATIENT
  Age: 83 Year
  Sex: Female
  Weight: 59.1 kg

DRUGS (2)
  1. GUADECITABINE [Suspect]
     Active Substance: GUADECITABINE
     Indication: MYELODYSPLASTIC SYNDROME
     Dosage: 08/APR/2018
     Route: 058
     Dates: start: 20170912
  2. ATEZOLIZUMAB. [Suspect]
     Active Substance: ATEZOLIZUMAB
     Indication: MYELODYSPLASTIC SYNDROME
     Dosage: 07/AUG/2018, SHE RECEIVED LAST DOSE OF ATEZOLIZUMAB (C11D8), 08/JUL/2018
     Route: 042
     Dates: start: 20170912

REACTIONS (2)
  - Chest pain [Unknown]
  - Infection [Unknown]

NARRATIVE: CASE EVENT DATE: 20180827
